FAERS Safety Report 8610343-3 (Version None)
Quarter: 2012Q3

REPORT INFORMATION
  Report Type: 
  Country: None (occurrence: None)
  Receive Date: 20120822
  Receipt Date: 20120817
  Transmission Date: 20120928
  Serious: Yes (Death, Hospitalization, Other)
  Sender: FDA-Public Use
  Company Number: PHHY2012MX031624

PATIENT
  Sex: Female

DRUGS (3)
  1. CLONOVERA [Concomitant]
     Indication: ARRHYTHMIA
  2. VALSARTAN/HYDROCHLOROTHIAZIDE [Suspect]
     Indication: HYPERTENSION
     Dosage: 1 DF(VALS 160 MG, HYDR 12.5 MG), ONCE DAILY
     Dates: start: 19900101, end: 20120404
  3. ASPIRIN [Concomitant]

REACTIONS (6)
  - RENAL FAILURE ACUTE [None]
  - MYOCARDIAL INFARCTION [None]
  - VOMITING [None]
  - ILEUS PARALYTIC [None]
  - SWELLING [None]
  - BLOOD POTASSIUM INCREASED [None]
